FAERS Safety Report 23857051 (Version 4)
Quarter: 2024Q2

REPORT INFORMATION
  Report Type: Spontaneous
  Country: JP (occurrence: None)
  Receive Date: 20240515
  Receipt Date: 20240607
  Transmission Date: 20240716
  Serious: Yes (Other)
  Sender: FDA-Public Use
  Company Number: 2024A109942

PATIENT

DRUGS (1)
  1. SYMBICORT [Suspect]
     Active Substance: BUDESONIDE\FORMOTEROL FUMARATE DIHYDRATE
     Dosage: 60 DOSES, UNKNOWN UNKNOWN
     Route: 055
     Dates: start: 20240425

REACTIONS (3)
  - Choking [Unknown]
  - Overdose [Unknown]
  - Device delivery system issue [Unknown]
